FAERS Safety Report 14961564 (Version 7)
Quarter: 2018Q4

REPORT INFORMATION
  Report Type: Report from Study
  Country: None (occurrence: US)
  Receive Date: 20180601
  Receipt Date: 20181120
  Transmission Date: 20190204
  Serious: Yes (Other)
  Sender: FDA-Public Use
  Company Number: US-ABBVIE-18K-163-2369388-00

PATIENT
  Age: 58 Year
  Sex: Female
  Weight: 54.03 kg

DRUGS (7)
  1. HUMIRA [Suspect]
     Active Substance: ADALIMUMAB
     Indication: DIARRHOEA
  2. IMODIUM [Suspect]
     Active Substance: LOPERAMIDE HYDROCHLORIDE
     Indication: DIARRHOEA
     Route: 065
  3. VITAMIN D [Concomitant]
     Active Substance: CHOLECALCIFEROL
     Indication: VITAMIN SUPPLEMENTATION
  4. CALCIUM [Concomitant]
     Active Substance: CALCIUM
     Indication: MINERAL SUPPLEMENTATION
  5. VIT B 12 [Concomitant]
     Indication: VITAMIN B12 DEFICIENCY
     Route: 065
  6. MULTIVITAMINS [Concomitant]
     Active Substance: VITAMINS
     Indication: PRODUCT USED FOR UNKNOWN INDICATION
  7. HUMIRA [Suspect]
     Active Substance: ADALIMUMAB
     Indication: CROHN^S DISEASE
     Route: 058
     Dates: start: 20170825

REACTIONS (36)
  - Arthralgia [Unknown]
  - Temperature intolerance [Unknown]
  - Gastrointestinal pain [Unknown]
  - Osteoarthritis [Recovered/Resolved]
  - Weight increased [Unknown]
  - Flatulence [Unknown]
  - Erythema [Unknown]
  - Incision site pruritus [Unknown]
  - Cough [Unknown]
  - Rash [Unknown]
  - Diarrhoea [Unknown]
  - Arthrodesis [Recovered/Resolved]
  - Incision site haemorrhage [Unknown]
  - Scleritis [Unknown]
  - Constipation [Unknown]
  - Neuropathy peripheral [Unknown]
  - Therapeutic response shortened [Unknown]
  - Hernia [Unknown]
  - Osteoarthritis [Unknown]
  - Osteoporosis [Unknown]
  - Arthrodesis [Unknown]
  - Frequent bowel movements [Unknown]
  - Osteoporosis [Unknown]
  - Sensitivity to weather change [Unknown]
  - Stress [Unknown]
  - Migraine with aura [Unknown]
  - Crohn^s disease [Unknown]
  - Vitamin B12 decreased [Unknown]
  - Abdominal distension [Unknown]
  - Headache [Unknown]
  - Pain in extremity [Unknown]
  - Incision site hypoaesthesia [Unknown]
  - Defaecation urgency [Unknown]
  - Mobility decreased [Recovering/Resolving]
  - Eczema [Unknown]
  - Abdominal discomfort [Unknown]

NARRATIVE: CASE EVENT DATE: 2017
